FAERS Safety Report 18463511 (Version 1)
Quarter: 2020Q4

REPORT INFORMATION
  Report Type: Report from Study
  Country: US (occurrence: US)
  Receive Date: 20201104
  Receipt Date: 20201104
  Transmission Date: 20210114
  Serious: Yes (Other)
  Sender: FDA-Public Use
  Company Number: US-ASTELLAS-2020US035145

PATIENT
  Age: 80 Year
  Sex: Male

DRUGS (1)
  1. ENZALUTAMIDE [Suspect]
     Active Substance: ENZALUTAMIDE
     Indication: HORMONE-REFRACTORY PROSTATE CANCER
     Route: 048
     Dates: start: 202008

REACTIONS (5)
  - Dizziness [Unknown]
  - Diarrhoea [Unknown]
  - Product size issue [Unknown]
  - Choking [Unknown]
  - Fatigue [Unknown]

NARRATIVE: CASE EVENT DATE: 202008
